FAERS Safety Report 25357029 (Version 5)
Quarter: 2025Q4

REPORT INFORMATION
  Report Type: Report from Study
  Country: CN (occurrence: CN)
  Receive Date: 20250526
  Receipt Date: 20251224
  Transmission Date: 20260118
  Serious: Yes (Other)
  Sender: ROCHE
  Company Number: CN-ROCHE-10000292752

PATIENT
  Age: 66 Year
  Sex: Female
  Weight: 46 kg

DRUGS (36)
  1. KADCYLA [Suspect]
     Active Substance: ADO-TRASTUZUMAB EMTANSINE
     Indication: HER2 positive breast cancer
     Dosage: DATE OF MOST RECENT DOSE OF MEDICINAL PRODUCT PRIOR TO AE ONSET: 28-SEP-2023?DOSE OF LAST MEDICINAL PRODUCT ADMINISTERED PRIOR TO AE ONSET: 160 MG
     Route: 042
     Dates: start: 20230928, end: 20231109
  2. HERBALS [Concomitant]
     Active Substance: HERBALS
     Route: 042
     Dates: start: 20230925, end: 20231008
  3. HERBALS [Concomitant]
     Active Substance: HERBALS
     Route: 048
     Dates: start: 20230926, end: 20231001
  4. HERBALS [Concomitant]
     Active Substance: HERBALS
     Route: 048
     Dates: start: 20231002, end: 20231007
  5. CEFUROXIME SODIUM [Concomitant]
     Active Substance: CEFUROXIME SODIUM
     Route: 042
     Dates: start: 20230926, end: 20231008
  6. CEFUROXIME SODIUM [Concomitant]
     Active Substance: CEFUROXIME SODIUM
     Route: 042
     Dates: start: 20231027, end: 20231027
  7. Tinidazole and Sodium Chloride Injection [Concomitant]
     Route: 042
     Dates: start: 20230926, end: 20231008
  8. Tinidazole and Sodium Chloride Injection [Concomitant]
     Route: 042
     Dates: start: 20231027, end: 20231110
  9. ENOXAPARIN SODIUM [Concomitant]
     Active Substance: ENOXAPARIN SODIUM
     Indication: Prophylaxis
     Route: 058
     Dates: start: 20230926, end: 20230927
  10. ERYTHROPOIETIN [Concomitant]
     Active Substance: ERYTHROPOIETIN
     Route: 058
     Dates: start: 20230930, end: 20231008
  11. Omeprazole Sodium for Injection [Concomitant]
     Route: 042
     Dates: start: 20230928, end: 20230928
  12. Omeprazole Sodium for Injection [Concomitant]
     Route: 042
     Dates: start: 20231109, end: 20231109
  13. DIPHENHYDRAMINE HYDROCHLORIDE [Concomitant]
     Active Substance: DIPHENHYDRAMINE HYDROCHLORIDE
     Indication: Allergy prophylaxis
     Route: 030
     Dates: start: 20230928, end: 20230928
  14. DIPHENHYDRAMINE HYDROCHLORIDE [Concomitant]
     Active Substance: DIPHENHYDRAMINE HYDROCHLORIDE
     Route: 030
     Dates: start: 20231109, end: 20231109
  15. DIPHENHYDRAMINE HYDROCHLORIDE [Concomitant]
     Active Substance: DIPHENHYDRAMINE HYDROCHLORIDE
     Route: 030
     Dates: start: 20231110, end: 20231110
  16. DEXAMETHASONE SODIUM PHOSPHATE [Concomitant]
     Active Substance: DEXAMETHASONE SODIUM PHOSPHATE
     Indication: Allergy prophylaxis
     Route: 030
     Dates: start: 20230928, end: 20230928
  17. DEXAMETHASONE SODIUM PHOSPHATE [Concomitant]
     Active Substance: DEXAMETHASONE SODIUM PHOSPHATE
     Route: 030
     Dates: start: 20231109, end: 20231109
  18. Tropisetron Hydrochloride Injection [Concomitant]
     Route: 042
     Dates: start: 20231001, end: 20231001
  19. Human Albumin Injection [Concomitant]
     Indication: Hypoalbuminaemia
     Route: 042
     Dates: start: 20231027, end: 20231114
  20. ASCORBIC ACID [Concomitant]
     Active Substance: ASCORBIC ACID
     Route: 042
     Dates: start: 20231028, end: 20231102
  21. VITAMIN B6 [Concomitant]
     Active Substance: PYRIDOXINE HYDROCHLORIDE
     Route: 042
     Dates: start: 20231028, end: 20231102
  22. METOPROLOL SUCCINATE [Concomitant]
     Active Substance: METOPROLOL SUCCINATE
     Indication: Sinus tachycardia
     Dosage: 4 CAPSULES OF 4 PO
     Route: 048
     Dates: start: 20231030, end: 20231115
  23. Paracetamol and Dihydrocodeine Tartrate Tablets [Concomitant]
     Indication: Cancer pain
     Route: 048
     Dates: start: 20231031, end: 20231115
  24. PIPERACILLIN SODIUM\TAZOBACTAM SODIUM [Concomitant]
     Active Substance: PIPERACILLIN SODIUM\TAZOBACTAM SODIUM
     Dosage: 3 OTHER
     Route: 042
     Dates: start: 20231031, end: 20231113
  25. AMINO ACIDS, SOURCE UNSPECIFIED [Concomitant]
     Active Substance: AMINO ACIDS, SOURCE UNSPECIFIED
     Route: 042
     Dates: start: 20231102, end: 20231114
  26. LIPOSYN (R) INTRAVENOUS FAT EMULSION [Concomitant]
     Active Substance: LIPOSYN (R) INTRAVENOUS FAT EMULSION
     Route: 042
     Dates: start: 20231102, end: 20231114
  27. MULTIVITAMIN FOR INJECTION (12? [Concomitant]
     Route: 042
     Dates: start: 20231102, end: 20231114
  28. DEXTROSE [Concomitant]
     Active Substance: DEXTROSE MONOHYDRATE
     Route: 042
     Dates: start: 20231102, end: 20231114
  29. LOPERAMIDE HYDROCHLORIDE [Concomitant]
     Active Substance: LOPERAMIDE HYDROCHLORIDE
     Indication: Prophylaxis against diarrhoea
     Route: 048
     Dates: start: 20231115
  30. Montmorillonite powder [Concomitant]
     Indication: Prophylaxis against diarrhoea
     Route: 048
     Dates: start: 20231113, end: 202312
  31. PALONOSETRON HYDROCHLORIDE [Concomitant]
     Active Substance: PALONOSETRON HYDROCHLORIDE
     Route: 042
     Dates: start: 20231111, end: 20231112
  32. CANERTINIB [Concomitant]
     Active Substance: CANERTINIB
     Indication: Cardiotoxicity
  33. CAPECITABINE [Concomitant]
     Active Substance: CAPECITABINE
     Indication: Cardiotoxicity
  34. PACLITAXEL [Concomitant]
     Active Substance: PACLITAXEL
     Route: 042
  35. CISPLATIN [Concomitant]
     Active Substance: CISPLATIN
  36. FUROSEMIDE [Concomitant]
     Active Substance: FUROSEMIDE

REACTIONS (1)
  - Drug-induced liver injury [Recovered/Resolved]

NARRATIVE: CASE EVENT DATE: 20230930
